FAERS Safety Report 25163522 (Version 2)
Quarter: 2025Q2

REPORT INFORMATION
  Report Type: Report from Study
  Country: US (occurrence: US)
  Receive Date: 20250405
  Receipt Date: 20250414
  Transmission Date: 20250716
  Serious: Yes (Hospitalization, Other)
  Sender: ABBVIE
  Company Number: US-ABBVIE-6202175

PATIENT
  Age: 55 Year
  Sex: Female
  Weight: 87 kg

DRUGS (11)
  1. SKYRIZI [Suspect]
     Active Substance: RISANKIZUMAB-RZAA
     Indication: Psoriasis
     Route: 058
     Dates: start: 2023, end: 202408
  2. VITAMIN D3 [Concomitant]
     Active Substance: CHOLECALCIFEROL
     Indication: Product used for unknown indication
     Dosage: 5000 UNITS DAILY
     Dates: start: 2024
  3. POTASSIUM [Concomitant]
     Active Substance: POTASSIUM
     Indication: Electrolyte substitution therapy
     Dates: start: 2024
  4. ESTRADIOL [Concomitant]
     Active Substance: ESTRADIOL
     Indication: Hormone replacement therapy
     Dates: start: 2015
  5. DIAZEPAM [Concomitant]
     Active Substance: DIAZEPAM
     Indication: Anxiety
     Dates: start: 2022
  6. ATENOLOL [Concomitant]
     Active Substance: ATENOLOL
     Indication: Hypertension
     Dates: start: 2010
  7. CITALOPRAM [Concomitant]
     Active Substance: CITALOPRAM
     Indication: Anxiety
     Dates: start: 2005
  8. ROSUVASTATIN [Concomitant]
     Active Substance: ROSUVASTATIN
     Indication: Blood cholesterol
     Dates: start: 2023
  9. GABAPENTIN [Concomitant]
     Active Substance: GABAPENTIN
     Indication: Neuropathy peripheral
     Dates: start: 2022
  10. VALACYCLOVIR [Concomitant]
     Active Substance: VALACYCLOVIR HYDROCHLORIDE
     Indication: Antiviral treatment
     Dates: start: 2015
  11. CEPHALEXIN [Suspect]
     Active Substance: CEPHALEXIN
     Indication: Product used for unknown indication
     Route: 065
     Dates: start: 20250218

REACTIONS (6)
  - Malignant melanoma [Recovered/Resolved]
  - Psoriasis [Not Recovered/Not Resolved]
  - Drug hypersensitivity [Unknown]
  - Allergic oedema [Unknown]
  - Urticaria [Unknown]
  - Hospitalisation [Recovered/Resolved with Sequelae]

NARRATIVE: CASE EVENT DATE: 20241201
